FAERS Safety Report 8965896 (Version 1)
Quarter: 2012Q4

REPORT INFORMATION
  Report Type: 
  Country: US (occurrence: US)
  Receive Date: 20121217
  Receipt Date: 20121217
  Transmission Date: 20130627
  Serious: Yes (Other)
  Sender: FDA-Public Use
  Company Number: US-AMGEN-USASP2012079372

PATIENT
  Age: 45 Year
  Sex: Female

DRUGS (1)
  1. ENBREL [Suspect]
     Indication: PSORIASIS
     Dosage: 50 mg, qwk
     Dates: start: 20120601

REACTIONS (4)
  - Carpal tunnel syndrome [Not Recovered/Not Resolved]
  - Physical disability [Not Recovered/Not Resolved]
  - Surgical failure [Not Recovered/Not Resolved]
  - Psoriasis [Not Recovered/Not Resolved]
